FAERS Safety Report 13505568 (Version 3)
Quarter: 2021Q2

REPORT INFORMATION
  Report Type: Spontaneous
  Country: US (occurrence: US)
  Receive Date: 20170502
  Receipt Date: 20210512
  Transmission Date: 20210716
  Serious: No
  Sender: FDA-Public Use
  Company Number: US-ASTRAZENECA-2016SE73976

PATIENT
  Age: 70 Year
  Sex: Male
  Weight: 104.3 kg

DRUGS (1)
  1. BYDUREON [Suspect]
     Active Substance: EXENATIDE
     Indication: TYPE 2 DIABETES MELLITUS
     Route: 058
     Dates: start: 2014

REACTIONS (4)
  - Device malfunction [Unknown]
  - Injection site pain [Not Recovered/Not Resolved]
  - Incorrect dose administered by device [Unknown]
  - Body height decreased [Unknown]

NARRATIVE: CASE EVENT DATE: 2014
